FAERS Safety Report 5015290-4 (Version None)
Quarter: 2006Q2

REPORT INFORMATION
  Report Type: 
  Country: None (occurrence: None)
  Receive Date: 20060601
  Receipt Date: 20060410
  Transmission Date: 20061013
  Serious: Yes (Hospitalization, Disabling)
  Sender: FDA-Public Use
  Company Number: PT-BRISTOL-MYERS SQUIBB COMPANY-13342522

PATIENT
  Age: 76 Year
  Sex: Female

DRUGS (2)
  1. MITOMYCIN [Suspect]
     Indication: BLADDER CANCER
     Route: 043
     Dates: start: 20051215, end: 20051215
  2. CIPROFLOXACIN [Suspect]
     Indication: PROPHYLAXIS

REACTIONS (2)
  - PANCYTOPENIA [None]
  - PNEUMONIA [None]
